FAERS Safety Report 6997767-5 (Version None)
Quarter: 2010Q3

REPORT INFORMATION
  Report Type: 
  Country: None (occurrence: None)
  Receive Date: 20100920
  Receipt Date: 20100909
  Transmission Date: 20110219
  Serious: Yes (Hospitalization)
  Sender: FDA-Public Use
  Company Number: US-BIOGENIDEC-2008BI009723

PATIENT
  Sex: Female
  Weight: 62 kg

DRUGS (8)
  1. TYSABRI [Suspect]
     Indication: MULTIPLE SCLEROSIS
     Route: 042
     Dates: start: 20061110
  2. NEURONTIN [Concomitant]
     Indication: PAIN
  3. PROVIGIL [Concomitant]
     Indication: HYPERVIGILANCE
  4. VYTORIN [Concomitant]
     Indication: BLOOD CHOLESTEROL INCREASED
  5. PROZAC [Concomitant]
     Indication: DEPRESSION
  6. CYMBALTA [Concomitant]
     Indication: DEPRESSION
     Dates: start: 20080301
  7. VICODIN [Concomitant]
     Indication: PAIN
  8. FENTANYL CITRATE [Concomitant]
     Indication: PAIN

REACTIONS (15)
  - ARTHROPOD BITE [None]
  - BACK PAIN [None]
  - BACTERIAL INFECTION [None]
  - CONFUSIONAL STATE [None]
  - CONGENITAL OESOPHAGEAL ANOMALY [None]
  - DEPRESSION [None]
  - EFFUSION [None]
  - GIARDIASIS [None]
  - HIATUS HERNIA [None]
  - LOSS OF CONSCIOUSNESS [None]
  - MUSCULOSKELETAL PAIN [None]
  - NECK PAIN [None]
  - PAIN IN EXTREMITY [None]
  - SPINAL CORD COMPRESSION [None]
  - WEIGHT DECREASED [None]
